FAERS Safety Report 4906089-5 (Version None)
Quarter: 2006Q1

REPORT INFORMATION
  Report Type: 
  Country: None (occurrence: None)
  Receive Date: 20060207
  Receipt Date: 20060207
  Transmission Date: 20060701
  Serious: Yes (Hospitalization)
  Sender: FDA-Public Use
  Company Number: None

PATIENT
  Age: 81 Year
  Sex: Male
  Weight: 78.1 kg

DRUGS (9)
  1. WARFARIN [Suspect]
     Indication: ATRIAL FIBRILLATION
     Dosage: 3 MG DAILY CHANGE 8/10/05-11/23/05
     Dates: start: 20050810, end: 20051123
  2. SYNTHROID [Concomitant]
  3. RANITDINE HCL [Concomitant]
  4. LANOXIN [Concomitant]
  5. TERAZOSIN HCL [Concomitant]
  6. DONEPEZIL HCL [Concomitant]
  7. SOTALOL HCL [Concomitant]
  8. SIMVASTATIN [Concomitant]
  9. FLUNISOLIDE NASAL INHL [Concomitant]

REACTIONS (2)
  - CONFUSIONAL STATE [None]
  - HAEMORRHAGIC STROKE [None]
